FAERS Safety Report 17550689 (Version 1)
Quarter: 2020Q1

REPORT INFORMATION
  Report Type: Spontaneous
  Country: IT (occurrence: IT)
  Receive Date: 20200317
  Receipt Date: 20200317
  Transmission Date: 20200409
  Serious: Yes (Other)
  Sender: FDA-Public Use
  Company Number: IT-MYLANLABS-2020M1027969

PATIENT
  Age: 21 Year
  Sex: Male
  Weight: 114 kg

DRUGS (1)
  1. LEPONEX 100 MG COMPRESSE [Suspect]
     Active Substance: CLOZAPINE
     Indication: SCHIZOAFFECTIVE DISORDER
     Dosage: UNK
     Dates: start: 20180314

REACTIONS (9)
  - Dizziness [Unknown]
  - Bradykinesia [Unknown]
  - Somnolence [Unknown]
  - Muscle rigidity [Unknown]
  - Dyskinesia [Unknown]
  - Weight increased [Unknown]
  - Dystonia [Unknown]
  - Dry mouth [Unknown]
  - Tremor [Unknown]

NARRATIVE: CASE EVENT DATE: 20180430
